FAERS Safety Report 7892542-1 (Version None)
Quarter: 2011Q4

REPORT INFORMATION
  Report Type: 
  Country: None (occurrence: None)
  Receive Date: 20111104
  Receipt Date: 20111101
  Transmission Date: 20120403
  Serious: Yes (Other)
  Sender: FDA-Public Use
  Company Number: US-SANOFI-AVENTIS-2011SA072010

PATIENT
  Sex: Female

DRUGS (3)
  1. LANTUS [Suspect]
     Dosage: DOSE:15 UNIT(S)
     Route: 058
     Dates: start: 20050101, end: 20111001
  2. LANTUS [Suspect]
     Dosage: DOSE:30 UNIT(S)
     Route: 058
     Dates: start: 20111001
  3. SOLOSTAR [Suspect]
     Dates: start: 20050101

REACTIONS (5)
  - HEADACHE [None]
  - BLOOD GLUCOSE INCREASED [None]
  - GASTRIC HAEMORRHAGE [None]
  - NEUROPATHY PERIPHERAL [None]
  - TOOTH LOSS [None]
